FAERS Safety Report 9347937 (Version 1)
Quarter: 2013Q2

REPORT INFORMATION
  Report Type: Spontaneous
  Country: US (occurrence: None)
  Receive Date: 20130612
  Receipt Date: 20130612
  Transmission Date: 20140414
  Serious: Yes (Hospitalization)
  Sender: FDA-Public Use
  Company Number: None

PATIENT
  Age: 78 Year
  Sex: Male
  Weight: 92.3 kg

DRUGS (5)
  1. PAZOPANIB [Suspect]
     Indication: RENAL CANCER METASTATIC
     Route: 048
     Dates: start: 20130418, end: 20130611
  2. HYDROCHLOROTHIAZIDE [Concomitant]
  3. BIMATROPROST [Concomitant]
  4. PRIMIDONE [Concomitant]
  5. LORAZEPAM [Concomitant]

REACTIONS (6)
  - Dizziness [None]
  - Fall [None]
  - Muscular weakness [None]
  - Renal cancer metastatic [None]
  - Malignant neoplasm progression [None]
  - Bone pain [None]
